FAERS Safety Report 22541806 (Version 2)
Quarter: 2023Q2

REPORT INFORMATION
  Report Type: Spontaneous
  Country: CN (occurrence: CN)
  Receive Date: 20230609
  Receipt Date: 20230623
  Transmission Date: 20230721
  Serious: Yes (Hospitalization, Other)
  Sender: FDA-Public Use
  Company Number: CN-Merck Healthcare KGaA-9405770

PATIENT
  Age: 69 Year
  Sex: Male
  Weight: 57 kg

DRUGS (4)
  1. ERBITUX [Suspect]
     Active Substance: CETUXIMAB
     Indication: Squamous cell carcinoma of head and neck
     Dosage: 400 MG/M2, WEEKLY (1/W)
     Route: 042
     Dates: start: 20230403, end: 20230511
  2. COLCHICINE [Concomitant]
     Active Substance: COLCHICINE
     Indication: Product used for unknown indication
     Dosage: UNK UNK, UNKNOWN
     Route: 065
     Dates: start: 2021
  3. DEXAMETHASONE SODIUM PHOSPHATE [Concomitant]
     Active Substance: DEXAMETHASONE SODIUM PHOSPHATE
     Indication: Allergy prophylaxis
     Dosage: 10 MG, DAILY
     Route: 042
     Dates: start: 20230517
  4. MUCOPOLYSACCHARIDE POLYSULFATE [Concomitant]
     Indication: Phlebitis
     Dosage: UNK UNK, UNKNOWN
     Route: 061
     Dates: start: 20230517

REACTIONS (2)
  - Dysphagia [Recovered/Resolved]
  - Radiation skin injury [Unknown]

NARRATIVE: CASE EVENT DATE: 20230519
